FAERS Safety Report 9443804 (Version 2)
Quarter: 2013Q3

REPORT INFORMATION
  Report Type: Spontaneous
  Country: GB (occurrence: GB)
  Receive Date: 20130806
  Receipt Date: 20130819
  Transmission Date: 20140515
  Serious: Yes (Life-Threatening, Hospitalization, Other)
  Sender: FDA-Public Use
  Company Number: GB-009507513-1308GBR001616

PATIENT
  Age: 51 Year
  Sex: Male
  Weight: 92.8 kg

DRUGS (6)
  1. PEGINTERFERON ALFA-2B [Suspect]
     Indication: HEPATITIS C
     Dosage: UNK
     Route: 058
     Dates: start: 20121028
  2. PEGINTERFERON ALFA-2B [Suspect]
     Dosage: UNK
     Route: 058
     Dates: start: 20120928, end: 2012
  3. RIBAVIRIN [Suspect]
     Indication: HEPATITIS C
     Dosage: UNK
     Route: 048
     Dates: start: 20121028
  4. RIBAVIRIN [Suspect]
     Dosage: 200 MG, BID
     Route: 048
     Dates: start: 20120928, end: 2012
  5. RIBAVIRIN [Suspect]
     Dosage: 400 MG, BID
     Route: 048
     Dates: start: 20120928, end: 2012
  6. TELAPREVIR [Suspect]
     Indication: HEPATITIS C
     Dosage: 750 MG, TID
     Route: 048
     Dates: start: 20120928, end: 20121229

REACTIONS (28)
  - Mobility decreased [Not Recovered/Not Resolved]
  - Oedema [Unknown]
  - Confusional state [Unknown]
  - Thermal burn [Unknown]
  - Wound secretion [Unknown]
  - Influenza like illness [Unknown]
  - Arthralgia [Not Recovered/Not Resolved]
  - Anaemia [Not Recovered/Not Resolved]
  - Swelling face [Recovering/Resolving]
  - Impetigo [Not Recovered/Not Resolved]
  - Swelling [Recovering/Resolving]
  - Local swelling [Recovering/Resolving]
  - Rash generalised [Recovering/Resolving]
  - Joint stiffness [Not Recovered/Not Resolved]
  - Dyspnoea [Recovered/Resolved]
  - Swollen tongue [Recovering/Resolving]
  - Emotional disorder [Not Recovered/Not Resolved]
  - Pruritus [Not Recovered/Not Resolved]
  - Rash [Not Recovered/Not Resolved]
  - Anal inflammation [Recovering/Resolving]
  - Anal pruritus [Recovering/Resolving]
  - Arthralgia [Not Recovered/Not Resolved]
  - Hypoaesthesia [Not Recovered/Not Resolved]
  - Mental status changes [Not Recovered/Not Resolved]
  - Alopecia [Not Recovered/Not Resolved]
  - Skin swelling [Not Recovered/Not Resolved]
  - Product quality issue [Unknown]
  - Eye swelling [Not Recovered/Not Resolved]
